FAERS Safety Report 4533959-2 (Version None)
Quarter: 2004Q4

REPORT INFORMATION
  Report Type: 
  Country: None (occurrence: None)
  Receive Date: 20041221
  Receipt Date: 20041221
  Transmission Date: 20050328
  Serious: Yes (Life-Threatening, Hospitalization, Other)
  Sender: FDA-Public Use
  Company Number: None

PATIENT
  Sex: Female
  Weight: 80.7403 kg

DRUGS (1)
  1. VIOXX [Suspect]
     Indication: ARTHRITIS
     Dosage: 1EVERY OTHER D ORAL
     Route: 048
     Dates: start: 20030225, end: 20040929

REACTIONS (3)
  - DEPRESSION [None]
  - HEART RATE IRREGULAR [None]
  - SUICIDAL IDEATION [None]
